FAERS Safety Report 8340550 (Version 3)
Quarter: 2012Q4

REPORT INFORMATION
  Report Type: Report from Study
  Country: JP (occurrence: JP)
  Receive Date: 20120117
  Receipt Date: 20121123
  Transmission Date: 20130627
  Serious: Yes (Death, Other)
  Sender: FDA-Public Use
  Company Number: JP-ROCHE-1030042

PATIENT
  Age: 47 None
  Sex: Female
  Weight: 58 kg

DRUGS (42)
  1. TOCILIZUMAB [Suspect]
     Indication: RHEUMATOID ARTHRITIS
     Route: 041
     Dates: start: 20081101, end: 20081101
  2. TOCILIZUMAB [Suspect]
     Route: 041
     Dates: start: 20081206, end: 20081206
  3. TOCILIZUMAB [Suspect]
     Route: 041
     Dates: start: 20090110, end: 20090110
  4. TOCILIZUMAB [Suspect]
     Route: 041
     Dates: start: 20090207, end: 20090207
  5. TOCILIZUMAB [Suspect]
     Route: 041
     Dates: start: 20090307, end: 20090307
  6. TOCILIZUMAB [Suspect]
     Route: 041
     Dates: start: 20090404, end: 20090404
  7. TOCILIZUMAB [Suspect]
     Route: 041
     Dates: start: 20090502, end: 20090502
  8. TOCILIZUMAB [Suspect]
     Route: 041
     Dates: start: 20090606, end: 20090807
  9. TOCILIZUMAB [Suspect]
     Route: 041
     Dates: start: 20090912, end: 20090912
  10. TOCILIZUMAB [Suspect]
     Route: 041
     Dates: start: 20091003, end: 20091205
  11. TOCILIZUMAB [Suspect]
     Route: 041
     Dates: start: 20100109, end: 20100109
  12. TOCILIZUMAB [Suspect]
     Route: 041
     Dates: start: 20100206, end: 20100206
  13. TOCILIZUMAB [Suspect]
     Route: 041
     Dates: start: 20100313, end: 20100313
  14. TOCILIZUMAB [Suspect]
     Route: 041
     Dates: start: 20100403, end: 20100403
  15. TOCILIZUMAB [Suspect]
     Route: 041
     Dates: start: 20100508, end: 20100508
  16. TOCILIZUMAB [Suspect]
     Route: 041
     Dates: start: 20100619, end: 20100619
  17. TOCILIZUMAB [Suspect]
     Route: 041
     Dates: start: 20100703, end: 20100703
  18. TOCILIZUMAB [Suspect]
     Route: 041
     Dates: start: 20100731, end: 20100731
  19. TOCILIZUMAB [Suspect]
     Route: 041
     Dates: start: 20100821, end: 20100821
  20. TOCILIZUMAB [Suspect]
     Route: 041
     Dates: start: 20100918, end: 20100918
  21. TOCILIZUMAB [Suspect]
     Route: 041
     Dates: start: 20101002, end: 20110312
  22. TOCILIZUMAB [Suspect]
     Route: 041
     Dates: start: 20110416, end: 20110416
  23. TOCILIZUMAB [Suspect]
     Route: 041
     Dates: start: 20110507, end: 20110702
  24. TOCILIZUMAB [Suspect]
     Route: 041
     Dates: start: 20110809, end: 20110809
  25. TOCILIZUMAB [Suspect]
     Route: 041
     Dates: start: 20110915, end: 20111015
  26. FUROSEMIDE [Suspect]
     Indication: PULMONARY HYPERTENSION
     Route: 048
  27. PREDNISOLONE [Suspect]
     Indication: RHEUMATOID ARTHRITIS
     Route: 048
     Dates: start: 20090404, end: 20090605
  28. PREDNISOLONE [Suspect]
     Route: 048
     Dates: start: 20090606
  29. PREDNISOLONE [Suspect]
     Route: 048
  30. SPIRONOLACTONE [Suspect]
     Indication: PULMONARY HYPERTENSION
     Route: 048
  31. ALFACALCIDOL [Suspect]
     Indication: OSTEOPOROSIS
     Route: 048
  32. LANSOPRAZOLE [Suspect]
     Indication: PRODUCT USED FOR UNKNOWN INDICATION
     Route: 048
  33. FERROUS FUMARATE [Suspect]
     Indication: IRON DEFICIENCY ANAEMIA
     Route: 048
  34. CLARITHROMYCIN [Suspect]
     Indication: BRONCHITIS
     Route: 048
  35. CICLOSPORIN [Suspect]
     Indication: RHEUMATOID ARTHRITIS
     Route: 048
     Dates: end: 20090606
  36. CICLOSPORIN [Suspect]
     Indication: INTERSTITIAL LUNG DISEASE
     Route: 048
  37. OLOPATADINE HYDROCHLORIDE [Suspect]
     Indication: URTICARIA
     Route: 048
  38. PREDONINE [Concomitant]
     Indication: RHEUMATOID ARTHRITIS
     Route: 048
     Dates: end: 20090206
  39. PREDONINE [Concomitant]
     Route: 048
     Dates: start: 20090207, end: 20090403
  40. ISCOTIN [Concomitant]
     Indication: TUBERCULOSIS
     Route: 048
     Dates: start: 20080802, end: 20090606
  41. RIMATIL [Concomitant]
     Dosage: Dosage is uncertain.
     Route: 048
  42. AZULFIDINE-EN [Concomitant]
     Dosage: Dosage is uncertain.
     Route: 048

REACTIONS (6)
  - Lung neoplasm malignant [Fatal]
  - Pulmonary hypertension [Unknown]
  - Osteoporosis [Unknown]
  - Iron deficiency anaemia [Unknown]
  - Bronchitis [Unknown]
  - Urticaria [Unknown]
